FAERS Safety Report 20755735 (Version 1)
Quarter: 2022Q2

REPORT INFORMATION
  Report Type: Spontaneous
  Country: US (occurrence: US)
  Receive Date: 20220427
  Receipt Date: 20220427
  Transmission Date: 20220721
  Serious: No
  Sender: FDA-Public Use
  Company Number: US-ALLERGAN-2121159US

PATIENT
  Sex: Female
  Weight: 73 kg

DRUGS (1)
  1. RISEDRONATE SODIUM [Suspect]
     Active Substance: RISEDRONATE SODIUM
     Indication: Bone disorder
     Dosage: 2 PILLS IN ONE WEEK
     Route: 048

REACTIONS (1)
  - Inappropriate schedule of product administration [Unknown]
